FAERS Safety Report 13677792 (Version 2)
Quarter: 2017Q3

REPORT INFORMATION
  Report Type: Spontaneous
  Country: US (occurrence: US)
  Receive Date: 20170622
  Receipt Date: 20170905
  Transmission Date: 20171127
  Serious: No
  Sender: FDA-Public Use
  Company Number: US-GLAXOSMITHKLINE-US2017094773

PATIENT
  Age: 84 Year
  Sex: Female

DRUGS (1)
  1. VENTOLIN HFA [Suspect]
     Active Substance: ALBUTEROL SULFATE
     Indication: DYSPNOEA
     Dosage: 2 PUFF(S), TID
     Route: 055
     Dates: start: 20170615

REACTIONS (5)
  - Oropharyngeal discomfort [Not Recovered/Not Resolved]
  - Laryngitis [Not Recovered/Not Resolved]
  - Retching [Recovered/Resolved]
  - Product use in unapproved indication [Unknown]
  - Aphonia [Not Recovered/Not Resolved]

NARRATIVE: CASE EVENT DATE: 20170615
